FAERS Safety Report 13365022 (Version 2)
Quarter: 2018Q1

REPORT INFORMATION
  Report Type: Spontaneous
  Country: US (occurrence: US)
  Receive Date: 20170323
  Receipt Date: 20180219
  Transmission Date: 20180508
  Serious: No
  Sender: FDA-Public Use
  Company Number: US-ROCHE-1480189

PATIENT
  Sex: Male

DRUGS (13)
  1. SINGULAIR [Concomitant]
     Active Substance: MONTELUKAST SODIUM
  2. SIMVASTATIN. [Concomitant]
     Active Substance: SIMVASTATIN
  3. LEVOTHYROXINE SODIUM. [Concomitant]
     Active Substance: LEVOTHYROXINE SODIUM
  4. CIPROFLOXACIN HCL [Concomitant]
     Active Substance: CIPROFLOXACIN HYDROCHLORIDE
  5. ACETAMINOPHEN/HYDROCODONE [Concomitant]
     Active Substance: ACETAMINOPHEN\HYDROCODONE
  6. TEMAZEPAM. [Concomitant]
     Active Substance: TEMAZEPAM
  7. LISINOPRIL. [Concomitant]
     Active Substance: LISINOPRIL
  8. IBUPROFEN. [Concomitant]
     Active Substance: IBUPROFEN
  9. SULFAMETHOXAZOLE/TRIMETHOPRIM [Concomitant]
     Active Substance: SULFAMETHOXAZOLE\TRIMETHOPRIM
     Route: 065
  10. VOLTAREN [Concomitant]
     Active Substance: DICLOFENAC SODIUM
  11. XOLAIR [Suspect]
     Active Substance: OMALIZUMAB
     Indication: THROMBOCYTOPENIA
     Route: 058
  12. CIALIS [Concomitant]
     Active Substance: TADALAFIL
  13. ZOLPIDEM TARTRATE. [Concomitant]
     Active Substance: ZOLPIDEM TARTRATE

REACTIONS (6)
  - Headache [Unknown]
  - Feeling abnormal [Unknown]
  - Dizziness [Unknown]
  - Throat irritation [Unknown]
  - Fatigue [Unknown]
  - Dizziness [Recovered/Resolved]
